FAERS Safety Report 4931395-8 (Version None)
Quarter: 2006Q1

REPORT INFORMATION
  Report Type: 
  Country: None (occurrence: None)
  Receive Date: 20060303
  Receipt Date: 20060220
  Transmission Date: 20060701
  Serious: Yes (Disabling)
  Sender: FDA-Public Use
  Company Number: PHFR2006GB00918

PATIENT
  Age: 72 Year
  Sex: Female
  Weight: 71 kg

DRUGS (3)
  1. ZOMETA [Suspect]
     Indication: MULTIPLE MYELOMA
     Dosage: 4 MG, QMO
     Route: 042
     Dates: start: 20030701, end: 20051001
  2. MELPHALAN [Concomitant]
     Indication: MULTIPLE MYELOMA
     Dosage: 10 MG, 5DAYS/MONTH
     Route: 048
  3. PREDNISOLONE [Concomitant]
     Indication: MULTIPLE MYELOMA
     Dosage: 40 MG/DAY FOR 5 DAYS/MONTH X 12 MONTHS
     Route: 048

REACTIONS (2)
  - OSTEONECROSIS [None]
  - PAIN IN JAW [None]
